FAERS Safety Report 10907505 (Version 1)
Quarter: 2015Q1

REPORT INFORMATION
  Report Type: Spontaneous
  Country: US (occurrence: None)
  Receive Date: 20150309
  Receipt Date: 20150309
  Transmission Date: 20150721
  Serious: Yes (Other)
  Sender: FDA-Public Use
  Company Number: None

PATIENT
  Age: 66 Year
  Sex: Female
  Weight: 79.38 kg

DRUGS (13)
  1. PROPRANOLOL ER 80MG [Concomitant]
  2. CENTRUM SILVER WOMEN^S 50+ [Concomitant]
     Active Substance: VITAMINS
  3. NYSTATIN. [Suspect]
     Active Substance: NYSTATIN
     Indication: RASH
     Dosage: SPRINKLE ON AFFECT AREA, TWIC DAILY, APPLIED TO A SURFACE USUALLY THE SKIN
     Dates: start: 20150107, end: 20150108
  4. OXYBUTYNIN 5MG [Concomitant]
  5. IRBESARTAN 300MG [Concomitant]
  6. PRAVASTATIN [Concomitant]
     Active Substance: PRAVASTATIN\PRAVASTATIN SODIUM
  7. BIOTIN [Concomitant]
     Active Substance: BIOTIN
  8. AMLODIPINE BESYLATE. [Concomitant]
     Active Substance: AMLODIPINE BESYLATE
  9. MOVE FREE ULTRA TRIPLE [Concomitant]
  10. BABY ASPIRIN [Concomitant]
     Active Substance: ASPIRIN
  11. ESTRADIOL. [Concomitant]
     Active Substance: ESTRADIOL
  12. VITAMIN D3 [Concomitant]
     Active Substance: CHOLECALCIFEROL
  13. FUROSEMIDE 40MG [Concomitant]
     Active Substance: FUROSEMIDE

REACTIONS (5)
  - Product lot number issue [None]
  - Drug ineffective [None]
  - Pruritus [None]
  - Rash generalised [None]
  - Erythema [None]

NARRATIVE: CASE EVENT DATE: 20150107
